FAERS Safety Report 4588306-7 (Version None)
Quarter: 2005Q1

REPORT INFORMATION
  Report Type: 
  Country: None (occurrence: None)
  Receive Date: 20050216
  Receipt Date: 20050204
  Transmission Date: 20050727
  Serious: Yes (Death)
  Sender: FDA-Public Use
  Company Number: 2004AP04943

PATIENT
  Age: 75 Year
  Sex: Male
  Weight: 48 kg

DRUGS (8)
  1. IRESSA [Suspect]
     Indication: NON-SMALL CELL LUNG CANCER
     Dosage: 250 MG DAILY PO
     Route: 048
     Dates: start: 20040501, end: 20040911
  2. DIPRIVAN [Suspect]
     Indication: SEDATIVE THERAPY
     Dosage: 4-11 ML/HR (48000 MG TOTAL)
     Dates: start: 20040912, end: 20041007
  3. MUSCULAX [Suspect]
     Indication: SEDATIVE THERAPY
     Dosage: 04-0.8 MG/HR
     Dates: start: 20040913, end: 20041007
  4. RYTHMODAN [Concomitant]
  5. AMOBAN [Concomitant]
  6. LOPEMIN [Concomitant]
  7. LAC B [Concomitant]
  8. CERNILTON [Concomitant]

REACTIONS (4)
  - INFECTION [None]
  - INTERSTITIAL LUNG DISEASE [None]
  - LYMPHANGIOSIS CARCINOMATOSA [None]
  - RHABDOMYOLYSIS [None]
